FAERS Safety Report 24894784 (Version 1)
Quarter: 2025Q1

REPORT INFORMATION
  Report Type: Spontaneous
  Country: US (occurrence: None)
  Receive Date: 20250127
  Receipt Date: 20250127
  Transmission Date: 20250408
  Serious: No
  Sender: FDA-CTU
  Company Number: None

PATIENT
  Age: 11 Year
  Sex: Female

DRUGS (1)
  1. CHLORHEXIDINE [Suspect]
     Active Substance: CHLORHEXIDINE

REACTIONS (1)
  - Type IV hypersensitivity reaction [None]

NARRATIVE: CASE EVENT DATE: 20250126
